FAERS Safety Report 12486336 (Version 2)
Quarter: 2016Q3

REPORT INFORMATION
  Report Type: Spontaneous
  Country: CA (occurrence: CA)
  Receive Date: 20160621
  Receipt Date: 20160811
  Transmission Date: 20161109
  Serious: Yes (Hospitalization, Other)
  Sender: FDA-Public Use
  Company Number: CA-PFIZER INC-2015129639

PATIENT
  Age: 43 Year
  Sex: Male

DRUGS (3)
  1. ENBREL [Concomitant]
     Active Substance: ETANERCEPT
     Indication: RHEUMATOID ARTHRITIS
     Dosage: 50 MG, WEEKLY
     Route: 058
     Dates: start: 200612, end: 200704
  2. METHOTREXATE SODIUM. [Suspect]
     Active Substance: METHOTREXATE SODIUM
     Indication: RHEUMATOID ARTHRITIS
     Dosage: 25 MG, WEEKLY
     Route: 058
     Dates: start: 200606
  3. SULFASALAZINE. [Concomitant]
     Active Substance: SULFASALAZINE
     Indication: RHEUMATOID ARTHRITIS
     Dosage: 500 MG, 2X/DAY
     Route: 048
     Dates: start: 200612, end: 200704

REACTIONS (7)
  - Condition aggravated [Unknown]
  - Impaired healing [Unknown]
  - Arthropathy [Unknown]
  - Drug ineffective [Unknown]
  - Drug intolerance [Unknown]
  - Post procedural discharge [Unknown]
  - Infection [Recovering/Resolving]

NARRATIVE: CASE EVENT DATE: 201503
